FAERS Safety Report 21046686 (Version 1)
Quarter: 2022Q3

REPORT INFORMATION
  Report Type: Report from Study
  Country: BE (occurrence: BE)
  Receive Date: 20220706
  Receipt Date: 20220706
  Transmission Date: 20221026
  Serious: Yes (Hospitalization)
  Sender: FDA-Public Use
  Company Number: BE-ELI_LILLY_AND_COMPANY-BE202206010918

PATIENT
  Age: 64 Year
  Sex: Female
  Weight: 78.2 kg

DRUGS (2)
  1. IMLUNESTRANT [Suspect]
     Active Substance: IMLUNESTRANT
     Indication: Invasive lobular breast carcinoma
     Dosage: 400 MG, UNKNOWN
     Route: 048
     Dates: start: 20220525
  2. ABEMACICLIB [Suspect]
     Active Substance: ABEMACICLIB
     Indication: Invasive lobular breast carcinoma
     Dosage: 150 MG, UNKNOWN
     Route: 048
     Dates: start: 20220525

REACTIONS (3)
  - Diarrhoea [Recovered/Resolved]
  - Hypokalaemia [Recovered/Resolved]
  - Hyponatraemia [Recovered/Resolved]

NARRATIVE: CASE EVENT DATE: 20220620
